FAERS Safety Report 19864991 (Version 2)
Quarter: 2022Q2

REPORT INFORMATION
  Report Type: Spontaneous
  Country: US (occurrence: US)
  Receive Date: 20210921
  Receipt Date: 20220421
  Transmission Date: 20220721
  Serious: Yes (Other)
  Sender: FDA-Public Use
  Company Number: US-AMGEN-USASP2021142857

PATIENT
  Age: 72 Year
  Sex: Female

DRUGS (8)
  1. BEVACIZUMAB [Suspect]
     Active Substance: BEVACIZUMAB
     Indication: Anaemia
     Dosage: 5 MILLIGRAM/KILOGRAM, Q2WK
     Route: 065
  2. BEVACIZUMAB [Suspect]
     Active Substance: BEVACIZUMAB
     Indication: Off label use
     Dosage: 5 MILLIGRAM/KILOGRAM, QMO
     Route: 065
  3. DARBEPOETIN ALFA [Suspect]
     Active Substance: DARBEPOETIN ALFA
     Indication: Anaemia
     Dosage: 200-400 MICROGRAM
     Route: 065
  4. DARBEPOETIN ALFA [Suspect]
     Active Substance: DARBEPOETIN ALFA
     Indication: Off label use
  5. IRON [Concomitant]
     Active Substance: IRON
  6. ASPIRIN [Concomitant]
     Active Substance: ASPIRIN
     Dosage: 81 MILLIGRAM, QD
  7. TRANEXAMIC ACID [Concomitant]
     Active Substance: TRANEXAMIC ACID
     Dosage: 1300 MILLIGRAM, TID
  8. OCTREOTIDE [Concomitant]
     Active Substance: OCTREOTIDE
     Dosage: 50 MICROGRAM, TID

REACTIONS (5)
  - Procedural haemorrhage [Unknown]
  - Heyde^s syndrome [Unknown]
  - Therapy non-responder [Not Recovered/Not Resolved]
  - Off label use [Unknown]
  - Drug effective for unapproved indication [Unknown]
